FAERS Safety Report 16641150 (Version 1)
Quarter: 2019Q3

REPORT INFORMATION
  Report Type: Spontaneous
  Country: US (occurrence: US)
  Receive Date: 20190613
  Receipt Date: 20190613
  Transmission Date: 20191004
  Serious: Yes (Other)
  Sender: FDA-Public Use
  Company Number: None

PATIENT
  Age: 66 Year
  Sex: Male
  Weight: 192 kg

DRUGS (1)
  1. ROFLUMILAST. [Suspect]
     Active Substance: ROFLUMILAST
     Indication: CHRONIC OBSTRUCTIVE PULMONARY DISEASE
     Route: 048
     Dates: start: 20180416

REACTIONS (3)
  - Depression [None]
  - Chronic obstructive pulmonary disease [None]
  - Suicidal ideation [None]

NARRATIVE: CASE EVENT DATE: 20180615
